FAERS Safety Report 6618730-X (Version None)
Quarter: 2010Q1

REPORT INFORMATION
  Report Type: 
  Country: None (occurrence: None)
  Receive Date: 20100308
  Receipt Date: 20100222
  Transmission Date: 20100710
  Serious: Yes (Hospitalization)
  Sender: FDA-Public Use
  Company Number: US-ELI_LILLY_AND_COMPANY-US201002007080

PATIENT
  Sex: Female

DRUGS (7)
  1. FORTEO [Suspect]
     Indication: OSTEOPOROSIS
     Dosage: 20 UG, DAILY (1/D)
     Dates: start: 20090301
  2. WELCHOL [Concomitant]
     Dosage: 625 MG, DAILY (1/D)
  3. AMLODIPINE [Concomitant]
     Indication: BLOOD PRESSURE
  4. PROTONIX /01263201/ [Concomitant]
     Dosage: UNK, DAILY (1/D)
  5. CALCIUM [Concomitant]
     Dosage: UNK, DAILY (1/D)
  6. VITAMIN D [Concomitant]
     Dosage: 50000 U, WEEKLY (1/W)
  7. VITAMIN D [Concomitant]
     Dosage: 2000 U, DAILY (1/D)

REACTIONS (13)
  - ABDOMINAL DISCOMFORT [None]
  - BACK DISORDER [None]
  - BACK PAIN [None]
  - DRUG DOSE OMISSION [None]
  - DYSSTASIA [None]
  - FEELING ABNORMAL [None]
  - GASTRIC ULCER [None]
  - INFLUENZA [None]
  - MENTAL DISORDER [None]
  - MUSCLE SPASMS [None]
  - NAUSEA [None]
  - OSTEOPOROSIS [None]
  - SOMNOLENCE [None]
